FAERS Safety Report 7018119-8 (Version None)
Quarter: 2010Q3

REPORT INFORMATION
  Report Type: 
  Country: None (occurrence: None)
  Receive Date: 20100928
  Receipt Date: 20100921
  Transmission Date: 20110219
  Serious: Yes (Other)
  Sender: FDA-Public Use
  Company Number: JP-ROCHE-652070

PATIENT
  Sex: Female

DRUGS (10)
  1. TOCILIZUMAB [Suspect]
     Indication: RHEUMATOID ARTHRITIS
     Route: 041
     Dates: start: 20081212, end: 20081212
  2. TOCILIZUMAB [Suspect]
     Route: 041
     Dates: start: 20090109, end: 20090109
  3. TOCILIZUMAB [Suspect]
     Route: 041
     Dates: start: 20090206, end: 20090206
  4. TOCILIZUMAB [Suspect]
     Route: 041
     Dates: start: 20090306, end: 20090306
  5. TOCILIZUMAB [Suspect]
     Route: 041
     Dates: start: 20090403, end: 20090403
  6. TOCILIZUMAB [Suspect]
     Route: 041
     Dates: start: 20090501, end: 20090501
  7. METHOTREXATE [Concomitant]
     Route: 048
  8. NEORAL [Concomitant]
     Route: 048
  9. PREDONINE [Concomitant]
     Route: 048
  10. INFREE [Concomitant]
     Route: 048

REACTIONS (4)
  - DYSPHONIA [None]
  - HERPES VIRUS INFECTION [None]
  - OROPHARYNGEAL PAIN [None]
  - VOCAL CORD PARALYSIS [None]
